FAERS Safety Report 4860722-5 (Version None)
Quarter: 2005Q4

REPORT INFORMATION
  Report Type: 
  Country: None (occurrence: None)
  Receive Date: 20051220
  Receipt Date: 20051216
  Transmission Date: 20060501
  Serious: Yes (Death)
  Sender: FDA-Public Use
  Company Number: US-BOEHRINGER INGELHEIM PHARMACEUTICALS, INC.-2005-BP-21563BP

PATIENT

DRUGS (1)
  1. VIRAMUNE [Suspect]
     Route: 065

REACTIONS (1)
  - DEATH [None]
